FAERS Safety Report 23735029 (Version 2)
Quarter: 2024Q2

REPORT INFORMATION
  Report Type: Spontaneous
  Country: US (occurrence: US)
  Receive Date: 20240412
  Receipt Date: 20240424
  Transmission Date: 20240716
  Serious: Yes (Hospitalization, Other)
  Sender: FDA-Public Use
  Company Number: US-BIOGEN-2024BI01259741

PATIENT
  Age: 69 Year
  Sex: Male
  Weight: 113.64 kg

DRUGS (40)
  1. TECFIDERA [Suspect]
     Active Substance: DIMETHYL FUMARATE
     Indication: Multiple sclerosis
     Dosage: LOADING DOSE
     Route: 050
  2. TECFIDERA [Suspect]
     Active Substance: DIMETHYL FUMARATE
     Dosage: MAINTENANCE DOSE
     Route: 050
  3. LOPRESSOR [Concomitant]
     Active Substance: METOPROLOL TARTRATE
     Indication: Product used for unknown indication
     Dosage: Q8HR
     Route: 050
  4. CORLANOR [Concomitant]
     Active Substance: IVABRADINE HYDROCHLORIDE
     Indication: Product used for unknown indication
     Dosage: BID
     Route: 050
  5. LASIX [Concomitant]
     Active Substance: FUROSEMIDE
     Indication: Product used for unknown indication
     Dosage: BID
     Route: 050
  6. LASIX [Concomitant]
     Active Substance: FUROSEMIDE
     Dosage: BID
     Route: 050
  7. LASIX [Concomitant]
     Active Substance: FUROSEMIDE
     Dosage: BID
     Route: 050
  8. FLOMAX [Concomitant]
     Active Substance: TAMSULOSIN HYDROCHLORIDE
     Indication: Product used for unknown indication
     Dosage: BID
     Route: 050
  9. COLACE [Concomitant]
     Active Substance: DOCUSATE SODIUM
     Indication: Product used for unknown indication
     Dosage: BID
     Route: 050
  10. COLACE [Concomitant]
     Active Substance: DOCUSATE SODIUM
     Dosage: 1 CAPSULE BY MOUTH DAILY
     Route: 050
  11. ULTRAM [Concomitant]
     Active Substance: TRAMADOL HYDROCHLORIDE
     Indication: Product used for unknown indication
     Dosage: Q6H
     Route: 050
  12. TEARS NATURALE FORTE [Concomitant]
     Active Substance: DEXTRAN 70\GLYCERIN\HYPROMELLOSES
     Indication: Dry eye
     Dosage: 1DROP EACH EYE BID PRN
     Route: 050
  13. BENADRYL ALLERGY [Concomitant]
     Active Substance: DIPHENHYDRAMINE HYDROCHLORIDE
     Indication: Prophylaxis
     Dosage: Q4H PRN
     Route: 050
  14. BENADRYL ALLERGY [Concomitant]
     Active Substance: DIPHENHYDRAMINE HYDROCHLORIDE
     Dosage: 1 TABLET BY MOUTH DAILY
     Route: 050
  15. DELTASONE [Concomitant]
     Active Substance: PREDNISONE
     Indication: Product used for unknown indication
     Dosage: DAILY
     Route: 050
  16. ISOVUE [Concomitant]
     Active Substance: IOPAMIDOL
     Indication: Product used for unknown indication
     Dosage: 100 ML AS DIR
     Route: 050
  17. MYCELEX [Concomitant]
     Active Substance: CLOTRIMAZOLE
     Indication: Product used for unknown indication
     Dosage: 5XDAY
     Route: 050
  18. LANTUS MDV PYXIS [Concomitant]
     Indication: Product used for unknown indication
     Dosage: 20 UNIT BID
     Route: 050
  19. HUMALOG PYXIS [Concomitant]
     Indication: Type 2 diabetes mellitus
     Dosage: C MEALS HS
     Route: 050
  20. DEXTROSE 50 PERCENT [Concomitant]
     Indication: Product used for unknown indication
     Dosage: ASDIR PRN
     Route: 050
  21. CHLORASEPTIC SORE THROAT [Concomitant]
     Active Substance: PHENOL
     Indication: Product used for unknown indication
     Dosage: 2 SPRAY Q4H PRN
     Route: 050
  22. K-DUR [Concomitant]
     Active Substance: POTASSIUM CHLORIDE
     Indication: Product used for unknown indication
     Dosage: QPM
     Route: 050
  23. TYLENOL [Concomitant]
     Active Substance: ACETAMINOPHEN
     Indication: Product used for unknown indication
     Dosage: 1 TABLET BY MOUTH EVERY 8 HRS AS NEEDED
     Route: 050
  24. FLEXERIL [Concomitant]
     Active Substance: CYCLOBENZAPRINE HYDROCHLORIDE
     Indication: Product used for unknown indication
     Dosage: 1 TABLET BY MOUTH TWICE A DAY
     Route: 050
  25. DELTALIN [Concomitant]
     Active Substance: ERGOCALCIFEROL
     Indication: Product used for unknown indication
     Dosage: 50,000 UNITS QWEEK
     Route: 050
  26. FISH-EPA [Concomitant]
     Indication: Product used for unknown indication
     Route: 050
  27. MUCINEX [Concomitant]
     Active Substance: GUAIFENESIN
     Indication: Product used for unknown indication
     Dosage: BID
     Route: 050
  28. LIORESAL [Concomitant]
     Active Substance: BACLOFEN
     Indication: Product used for unknown indication
     Dosage: TID
     Route: 050
  29. LIORESAL [Concomitant]
     Active Substance: BACLOFEN
     Dosage: 40000MCG/20 ML, INTRATHECAL SOLUTION
     Route: 050
  30. IMITREX [Concomitant]
     Active Substance: SUMATRIPTAN SUCCINATE
     Indication: Product used for unknown indication
     Dosage: DAILY PRN
     Route: 050
  31. APRESOLINE HYDROCHLORIDE [Concomitant]
     Active Substance: HYDRALAZINE HYDROCHLORIDE
     Indication: Product used for unknown indication
     Dosage: Q4H PRN
     Route: 050
  32. PEPCID [Concomitant]
     Active Substance: FAMOTIDINE
     Indication: Product used for unknown indication
     Dosage: 1 TABLET BY MOUTH DAILY
     Route: 050
  33. AUBAGIO [Concomitant]
     Active Substance: TERIFLUNOMIDE
     Indication: Product used for unknown indication
     Dosage: QPM
     Route: 050
  34. isopto tears ophth [Concomitant]
     Indication: Product used for unknown indication
     Dosage: 1 DROP BID PRN EACH EYE
     Route: 050
  35. TRAZODONE [Concomitant]
     Active Substance: TRAZODONE HYDROCHLORIDE
     Indication: Product used for unknown indication
     Dosage: TAKE 1 TO 2 TABLETS BY MOUTH EVERY NIGHT AT BEDTIME
     Route: 050
  36. NITROGLYCERIN [Concomitant]
     Active Substance: NITROGLYCERIN
     Indication: Product used for unknown indication
     Dosage: AS NEEDED (PRN)
     Route: 050
  37. BISACODYL [Concomitant]
     Active Substance: BISACODYL
     Indication: Product used for unknown indication
     Dosage: 2 TABLET BY MOUTH DAILY
     Route: 050
  38. IBUPROFEN [Concomitant]
     Active Substance: IBUPROFEN
     Indication: Product used for unknown indication
     Dosage: 1 TABLET BY MOUTH TWICE A DAY
     Route: 050
  39. TRAMADOL [Concomitant]
     Active Substance: TRAMADOL\TRAMADOL HYDROCHLORIDE
     Indication: Product used for unknown indication
     Dosage: 1 TABLET BY MOUTH FOUR TIMES A DAY
     Route: 050
  40. LOVENOX [Concomitant]
     Active Substance: ENOXAPARIN SODIUM
     Indication: Product used for unknown indication
     Route: 050

REACTIONS (13)
  - Non-cardiac chest pain [Unknown]
  - Night sweats [Unknown]
  - Productive cough [Unknown]
  - Pulmonary oedema [Unknown]
  - Pyelonephritis [Unknown]
  - Infectious pleural effusion [Unknown]
  - Leukocytosis [Unknown]
  - Pneumonia [Unknown]
  - Klebsiella urinary tract infection [Unknown]
  - Proteus infection [Unknown]
  - Lymphadenopathy mediastinal [Unknown]
  - Splenomegaly [Unknown]
  - Hepatic steatosis [Unknown]

NARRATIVE: CASE EVENT DATE: 20230901
